FAERS Safety Report 8359023-2 (Version None)
Quarter: 2012Q2

REPORT INFORMATION
  Report Type: 
  Country: None (occurrence: None)
  Receive Date: 20120515
  Receipt Date: 20120507
  Transmission Date: 20120825
  Serious: No
  Sender: FDA-Public Use
  Company Number: US-BIOGENIDEC-2012BI016316

PATIENT
  Age: 36 Year
  Sex: Female

DRUGS (1)
  1. TYSABRI [Suspect]
     Indication: MULTIPLE SCLEROSIS
     Route: 042
     Dates: start: 20120425

REACTIONS (6)
  - COGNITIVE DISORDER [None]
  - FALL [None]
  - SOMNOLENCE [None]
  - BALANCE DISORDER [None]
  - APHASIA [None]
  - ASTHENIA [None]
